FAERS Safety Report 7407620-0 (Version None)
Quarter: 2011Q2

REPORT INFORMATION
  Report Type: 
  Country: None (occurrence: None)
  Receive Date: 20110405
  Receipt Date: 20110322
  Transmission Date: 20111010
  Serious: Yes (Other)
  Sender: FDA-Public Use
  Company Number: B0709570A

PATIENT
  Age: 5 Year
  Sex: Female

DRUGS (6)
  1. NEVIRAPINE [Suspect]
     Indication: HIV INFECTION
  2. RIFAMPICIN [Concomitant]
  3. ISONIAZID [Concomitant]
  4. LAMIVUDINE [Suspect]
     Indication: HIV INFECTION
  5. ETHAMBUTOL HYDROCHLORIDE [Concomitant]
  6. ABACAVIR SULFATE [Suspect]
     Indication: HIV INFECTION

REACTIONS (1)
  - IMMUNE RECONSTITUTION SYNDROME [None]
